FAERS Safety Report 19754557 (Version 2)
Quarter: 2021Q3

REPORT INFORMATION
  Report Type: Other
  Country: GB (occurrence: GB)
  Receive Date: 20210827
  Receipt Date: 20210910
  Transmission Date: 20211014
  Serious: Yes (Other)
  Sender: FDA-Public Use
  Company Number: GB-ROCHE-2896701

PATIENT
  Sex: Female

DRUGS (4)
  1. ROACTEMRA [Suspect]
     Active Substance: TOCILIZUMAB
     Indication: RHEUMATOID ARTHRITIS
     Route: 058
     Dates: start: 2017
  2. PREDNISOLONE. [Concomitant]
     Active Substance: PREDNISOLONE
  3. PRIMSOL [Concomitant]
     Active Substance: TRIMETHOPRIM HYDROCHLORIDE
  4. ADCAL (UNITED KINGDOM) [Concomitant]
     Active Substance: CALCIUM CARBONATE

REACTIONS (1)
  - COVID-19 [Unknown]
